FAERS Safety Report 12363574 (Version 2)
Quarter: 2019Q4

REPORT INFORMATION
  Report Type: Spontaneous
  Country: US (occurrence: US)
  Receive Date: 20160512
  Receipt Date: 20191213
  Transmission Date: 20200122
  Serious: No
  Sender: FDA-Public Use
  Company Number: US-UCBSA-2016000726

PATIENT
  Age: 55 Year
  Sex: Female
  Weight: 108.8 kg

DRUGS (9)
  1. NIFEDIPIN [Concomitant]
     Active Substance: NIFEDIPINE
     Indication: PRODUCT USED FOR UNKNOWN INDICATION
     Dosage: UNK, ONCE DAILY (QD), 30 MG,} 5 YEARS
  2. MULTIVITAMIN [Concomitant]
     Active Substance: VITAMINS
     Indication: PRODUCT USED FOR UNKNOWN INDICATION
     Dosage: UNK, ONCE DAILY (QD)
     Route: 048
  3. CRESTOR [Concomitant]
     Active Substance: ROSUVASTATIN CALCIUM
     Indication: PRODUCT USED FOR UNKNOWN INDICATION
     Dosage: ONCE DAILY (QD), 5 MG,} 5 YEARS
     Route: 048
  4. MUCINEX [Concomitant]
     Active Substance: GUAIFENESIN
     Indication: PRODUCT USED FOR UNKNOWN INDICATION
     Dosage: UNK, ONCE DAILY (QD)
     Route: 048
  5. CIMZIA [Suspect]
     Active Substance: CERTOLIZUMAB PEGOL
     Indication: PSORIATIC ARTHROPATHY
     Dosage: 400 MG, EV 4 WEEKS
     Route: 058
     Dates: start: 201510
  6. VECTICAL [Concomitant]
     Active Substance: CALCITRIOL
     Indication: PSORIASIS
     Dosage: UNK, ONCE DAILY (QD)
     Route: 061
  7. BENAZEPRIL HCL [Concomitant]
     Active Substance: BENAZEPRIL HYDROCHLORIDE
     Indication: HYPERTENSION
     Dosage: UNK, ONCE DAILY (QD), 20 MG ,} 5 YEARS
     Route: 048
  8. AZELASTINE. [Concomitant]
     Active Substance: AZELASTINE HYDROCHLORIDE
     Indication: PRODUCT USED FOR UNKNOWN INDICATION
     Dosage: 2 SPRAYS EACH NOSTRIL, APPROXIMATE 5 YEARS
  9. OMEPRAZOLE. [Concomitant]
     Active Substance: OMEPRAZOLE
     Indication: PRODUCT USED FOR UNKNOWN INDICATION
     Dosage: UNK, ONCE DAILY (QD)
     Route: 048

REACTIONS (2)
  - Dizziness [Recovered/Resolved]
  - Fatigue [Recovered/Resolved]

NARRATIVE: CASE EVENT DATE: 20151224
